APPROVED DRUG PRODUCT: KANAMYCIN SULFATE
Active Ingredient: KANAMYCIN SULFATE
Strength: EQ 1GM BASE/3ML
Dosage Form/Route: INJECTABLE;INJECTION
Application: A063092 | Product #001
Applicant: WARNER CHILCOTT DIV WARNER LAMBERT CO
Approved: Oct 11, 1989 | RLD: No | RS: No | Type: DISCN